FAERS Safety Report 9585893 (Version 1)
Quarter: 2013Q3

REPORT INFORMATION
  Report Type: Spontaneous
  Country: US (occurrence: None)
  Receive Date: 20130926
  Receipt Date: 20130926
  Transmission Date: 20140515
  Serious: No
  Sender: FDA-Public Use
  Company Number: 2013-00622

PATIENT
  Sex: Female

DRUGS (3)
  1. VALPROIC ACID (EXTENDED RELEASE) [Suspect]
  2. CITALOPRAM (CITALOPRAM) [Suspect]
  3. METHOCARBAMOL [Suspect]

REACTIONS (1)
  - Completed suicide [None]
